FAERS Safety Report 21553655 (Version 2)
Quarter: 2024Q4

REPORT INFORMATION
  Report Type: Report from Study
  Country: US (occurrence: US)
  Receive Date: 20221104
  Receipt Date: 20241008
  Transmission Date: 20250114
  Serious: Yes (Other)
  Sender: TAKEDA
  Company Number: US-TAKEDA-US201946045

PATIENT
  Age: 53 Year
  Sex: Male

DRUGS (21)
  1. TEDUGLUTIDE [Suspect]
     Active Substance: TEDUGLUTIDE
     Indication: Short-bowel syndrome
     Dosage: 4.3 MILLIGRAM, QD
     Route: 042
     Dates: start: 201304, end: 2018
  2. TEDUGLUTIDE [Suspect]
     Active Substance: TEDUGLUTIDE
     Indication: Short-bowel syndrome
     Dosage: 4.3 MILLIGRAM, QD
     Route: 042
     Dates: start: 201304, end: 2018
  3. TEDUGLUTIDE [Suspect]
     Active Substance: TEDUGLUTIDE
     Indication: Short-bowel syndrome
     Dosage: 4.3 MILLIGRAM, QD
     Route: 042
     Dates: start: 201304, end: 2018
  4. TEDUGLUTIDE [Suspect]
     Active Substance: TEDUGLUTIDE
     Indication: Short-bowel syndrome
     Dosage: 4.3 MILLIGRAM, QD
     Route: 042
     Dates: start: 201304, end: 2018
  5. TEDUGLUTIDE [Suspect]
     Active Substance: TEDUGLUTIDE
     Dosage: 4 MILLIGRAM
     Route: 042
     Dates: start: 20180625, end: 20200715
  6. TEDUGLUTIDE [Suspect]
     Active Substance: TEDUGLUTIDE
     Dosage: 4 MILLIGRAM
     Route: 042
     Dates: start: 20180625, end: 20200715
  7. TEDUGLUTIDE [Suspect]
     Active Substance: TEDUGLUTIDE
     Dosage: 4 MILLIGRAM
     Route: 042
     Dates: start: 20180625, end: 20200715
  8. TEDUGLUTIDE [Suspect]
     Active Substance: TEDUGLUTIDE
     Dosage: 4 MILLIGRAM
     Route: 042
     Dates: start: 20180625, end: 20200715
  9. TEDUGLUTIDE [Suspect]
     Active Substance: TEDUGLUTIDE
     Dosage: 4 MILLIGRAM, QD
     Route: 042
     Dates: start: 20200715, end: 20210615
  10. TEDUGLUTIDE [Suspect]
     Active Substance: TEDUGLUTIDE
     Dosage: 4 MILLIGRAM, QD
     Route: 042
     Dates: start: 20200715, end: 20210615
  11. TEDUGLUTIDE [Suspect]
     Active Substance: TEDUGLUTIDE
     Dosage: 4 MILLIGRAM, QD
     Route: 042
     Dates: start: 20200715, end: 20210615
  12. TEDUGLUTIDE [Suspect]
     Active Substance: TEDUGLUTIDE
     Dosage: 4 MILLIGRAM, QD
     Route: 042
     Dates: start: 20200715, end: 20210615
  13. TEDUGLUTIDE [Suspect]
     Active Substance: TEDUGLUTIDE
     Dosage: 4.4 MILLIGRAM, QD
     Route: 042
     Dates: start: 20210615
  14. TEDUGLUTIDE [Suspect]
     Active Substance: TEDUGLUTIDE
     Dosage: 4.4 MILLIGRAM, QD
     Route: 042
     Dates: start: 20210615
  15. TEDUGLUTIDE [Suspect]
     Active Substance: TEDUGLUTIDE
     Dosage: 4.4 MILLIGRAM, QD
     Route: 042
     Dates: start: 20210615
  16. TEDUGLUTIDE [Suspect]
     Active Substance: TEDUGLUTIDE
     Dosage: 4.4 MILLIGRAM, QD
     Route: 042
     Dates: start: 20210615
  17. PEPCID [Concomitant]
     Active Substance: FAMOTIDINE
     Indication: Gastrooesophageal reflux disease
     Dosage: 20 MILLIGRAM, QD
     Route: 048
     Dates: start: 202101
  18. MERCAPTOPURINE [Concomitant]
     Active Substance: MERCAPTOPURINE
     Indication: Crohn^s disease
     Dosage: 75 MILLIGRAM, QD
     Route: 048
     Dates: start: 201804, end: 20210113
  19. STELARA [Concomitant]
     Active Substance: USTEKINUMAB
     Indication: Crohn^s disease
     Dosage: 90 MILLIGRAM, Q8WEEKS
     Route: 058
     Dates: start: 201804
  20. SODIUM BICARBONATE [Concomitant]
     Active Substance: SODIUM BICARBONATE
     Indication: Nephrolithiasis
     Dosage: 650 MILLIGRAM, BID
     Route: 048
     Dates: start: 2016, end: 20210113
  21. AMITRIPTYLINE HYDROCHLORIDE [Concomitant]
     Active Substance: AMITRIPTYLINE HYDROCHLORIDE
     Indication: Pain
     Dosage: 10 MILLIGRAM, QD
     Route: 048
     Dates: start: 20220119, end: 20220720

REACTIONS (1)
  - Enterocutaneous fistula [Recovered/Resolved]

NARRATIVE: CASE EVENT DATE: 20171005
